FAERS Safety Report 9103368 (Version 1)
Quarter: 2013Q1

REPORT INFORMATION
  Report Type: Spontaneous
  Country: US (occurrence: US)
  Receive Date: 20130219
  Receipt Date: 20130219
  Transmission Date: 20140127
  Serious: No
  Sender: FDA-Public Use
  Company Number: US-PFIZER INC-2013061642

PATIENT
  Age: 49 Year
  Sex: Female
  Weight: 67.57 kg

DRUGS (4)
  1. LYRICA [Suspect]
     Indication: FIBROMYALGIA
     Dosage: 150 MG, 3X/DAY
     Route: 048
     Dates: end: 201301
  2. PERCOCET [Concomitant]
     Dosage: UNK
  3. MORPHINE [Concomitant]
     Dosage: UNK
  4. CYMBALTA [Concomitant]
     Dosage: UNK

REACTIONS (3)
  - Poor quality sleep [Unknown]
  - Eating disorder [Unknown]
  - Withdrawal syndrome [Unknown]
